FAERS Safety Report 6879416-X (Version None)
Quarter: 2010Q3

REPORT INFORMATION
  Report Type: 
  Country: None (occurrence: None)
  Receive Date: 20100728
  Receipt Date: 20100715
  Transmission Date: 20110219
  Serious: Yes (Hospitalization)
  Sender: FDA-Public Use
  Company Number: PHHY2010CA10051

PATIENT
  Sex: Female

DRUGS (5)
  1. EXJADE [Suspect]
     Indication: SICKLE CELL ANAEMIA
     Dosage: 1500 MG, QD
     Route: 048
     Dates: start: 20100128, end: 20100501
  2. EXJADE [Suspect]
     Dosage: UNK
  3. COUMADIN [Concomitant]
  4. HYDROXYUREA [Concomitant]
  5. EYE DROPS [Suspect]

REACTIONS (2)
  - HEADACHE [None]
  - TOOTH EXTRACTION [None]
